FAERS Safety Report 5311088-8 (Version None)
Quarter: 2007Q2

REPORT INFORMATION
  Report Type: 
  Country: None (occurrence: None)
  Receive Date: 20070427
  Receipt Date: 20070427
  Transmission Date: 20071010
  Serious: Yes (Other)
  Sender: FDA-Public Use
  Company Number: None

PATIENT
  Age: 62 Year
  Sex: Male
  Weight: 82.4 kg

DRUGS (2)
  1. GENTAMICIN [Suspect]
     Indication: ABDOMINAL ABSCESS
     Dosage: 120 MG Q12H IV
     Route: 042
     Dates: start: 20070405, end: 20070407
  2. GENTAMICIN [Suspect]
     Indication: ABDOMINAL ABSCESS
     Dosage: 120 MG Q24H IV
     Route: 042
     Dates: start: 20070407, end: 20070409

REACTIONS (1)
  - NEPHROPATHY TOXIC [None]
